FAERS Safety Report 15515705 (Version 1)
Quarter: 2018Q4

REPORT INFORMATION
  Report Type: Spontaneous
  Country: US (occurrence: US)
  Receive Date: 20181017
  Receipt Date: 20181017
  Transmission Date: 20190205
  Serious: No
  Sender: FDA-Public Use
  Company Number: US-LEXICON PHARMACEUTICALS, INC-18-1606-01172

PATIENT
  Sex: Female

DRUGS (13)
  1. AFINITOR [Concomitant]
     Active Substance: EVEROLIMUS
     Dosage: 5 DAYS A WEEK
  2. AFINITOR [Concomitant]
     Active Substance: EVEROLIMUS
     Dosage: DAILY
  3. OCTREOTIDE ACETATE. [Concomitant]
     Active Substance: OCTREOTIDE ACETATE
  4. ZOFRAN [Concomitant]
     Active Substance: ONDANSETRON HYDROCHLORIDE
  5. PERCOCET [Concomitant]
     Active Substance: ACETAMINOPHEN\OXYCODONE HYDROCHLORIDE
  6. ANASTROZOLE. [Concomitant]
     Active Substance: ANASTROZOLE
  7. CALCIUM [Concomitant]
     Active Substance: CALCIUM
  8. LOPERAMIDE [Concomitant]
     Active Substance: LOPERAMIDE
  9. XGEVA [Concomitant]
     Active Substance: DENOSUMAB
  10. MECLIZINE [Concomitant]
     Active Substance: MECLIZINE HYDROCHLORIDE
  11. LOSARTAN POT [Concomitant]
     Active Substance: LOSARTAN POTASSIUM
  12. TELOTRISTAT ETHYL [Suspect]
     Active Substance: TELOTRISTAT ETHYL
     Indication: CARCINOID TUMOUR
     Route: 048
     Dates: start: 20170801
  13. DEXAMETHASONE. [Concomitant]
     Active Substance: DEXAMETHASONE

REACTIONS (1)
  - Paraesthesia oral [Unknown]
